FAERS Safety Report 13955395 (Version 1)
Quarter: 2017Q3

REPORT INFORMATION
  Report Type: Other
  Country: US (occurrence: US)
  Receive Date: 20170911
  Receipt Date: 20170911
  Transmission Date: 20171128
  Serious: Yes (Other)
  Sender: FDA-Public Use
  Company Number: US-B. BRAUN MEDICAL INC.-2025844

PATIENT
  Age: 37 Year
  Sex: Male

DRUGS (1)
  1. HEPARIN SODIUM AND DEXTROSE [Suspect]
     Active Substance: HEPARIN SODIUM

REACTIONS (2)
  - Haemorrhage [None]
  - Laboratory test interference [None]
